FAERS Safety Report 7356012 (Version 2)
Quarter: 2013Q1

REPORT INFORMATION
  Report Type: Report from Study
  Country: DE (occurrence: DE)
  Receive Date: 20100415
  Receipt Date: 20130204
  Transmission Date: 20140127
  Serious: Yes (Death)
  Sender: FDA-Public Use
  Company Number: DE-ROCHE-696925

PATIENT
  Age: 61 Year
  Sex: Female
  Weight: 65 kg

DRUGS (4)
  1. BEVACIZUMAB [Suspect]
     Indication: BREAST CANCER
     Dosage: DOSE LEVEL: 15 MG/KG, LAST DOSE PRIOR TO SAE: 30 MARCH 2010
     Route: 042
  2. TRASTUZUMAB [Suspect]
     Indication: BREAST CANCER
     Dosage: DOSE LEVEL: 8MG/KG, LAST DOSE PRIOR TO SAE: 30 MARCH 10
     Route: 042
  3. DOCETAXEL [Suspect]
     Indication: BREAST CANCER
     Dosage: FORM: VIAL, DOSE LEVEL: 75 MG/M2, LAST DOSE PRIOR TO SAE:30/MAR/2010
     Route: 042
  4. CARBOPLATIN [Suspect]
     Indication: BREAST CANCER
     Dosage: DOSE LEVEL: 6 AUC, LAST DOSE PRIOR TO SAE 30 MARCH 2010
     Route: 042
     Dates: start: 20100330

REACTIONS (1)
  - Febrile neutropenia [Fatal]
